FAERS Safety Report 25888941 (Version 1)
Quarter: 2025Q4

REPORT INFORMATION
  Report Type: Spontaneous
  Country: CN (occurrence: CN)
  Receive Date: 20251007
  Receipt Date: 20251007
  Transmission Date: 20260117
  Serious: Yes (Other)
  Sender: AAVIS PHARMACEUTICALS
  Company Number: CN-AVS-000237

PATIENT
  Sex: Male

DRUGS (4)
  1. TERBINAFINE [Suspect]
     Active Substance: TERBINAFINE
     Indication: Microsporum infection
     Route: 048
     Dates: start: 2024
  2. KETOCONAZOLE [Suspect]
     Active Substance: KETOCONAZOLE
     Indication: Microsporum infection
     Dosage: SHAMPOO
     Route: 065
     Dates: start: 2024
  3. AMOROLFINE [Suspect]
     Active Substance: AMOROLFINE
     Indication: Microsporum infection
     Route: 065
     Dates: start: 2024
  4. TERBINAFINE [Suspect]
     Active Substance: TERBINAFINE
     Indication: Microsporum infection
     Route: 065
     Dates: start: 2024

REACTIONS (3)
  - Microsporum infection [Unknown]
  - Product use in unapproved indication [Unknown]
  - Disease recurrence [Unknown]

NARRATIVE: CASE EVENT DATE: 20240101
